FAERS Safety Report 7570987-7 (Version None)
Quarter: 2011Q2

REPORT INFORMATION
  Report Type: 
  Country: None (occurrence: None)
  Receive Date: 20110624
  Receipt Date: 20110623
  Transmission Date: 20111010
  Serious: Yes (Hospitalization)
  Sender: FDA-Public Use
  Company Number: CA-ROCHE-751744

PATIENT
  Sex: Female
  Weight: 60 kg

DRUGS (26)
  1. TRASTUZUMAB [Suspect]
     Indication: BREAST CANCER
     Dosage: LOADING DOSE;LAST DOSE PRIOR TO SAE:22 DEC 2010
     Route: 042
     Dates: start: 20101222
  2. CARBOPLATIN [Suspect]
     Indication: BREAST CANCER
     Dosage: FORM: INFUSION,
     Route: 042
     Dates: start: 20101222
  3. ZOFRAN [Concomitant]
     Dates: start: 20101229, end: 20110413
  4. PHENAZOPYRIDINE HCL TAB [Concomitant]
     Dates: start: 20101230, end: 20101231
  5. DOCETAXEL [Suspect]
     Route: 042
     Dates: start: 20110303
  6. CARBOPLATIN [Suspect]
     Dosage: LAST DOSE PRIOR TO SAE ON 03 FEB 2011
     Route: 042
  7. IMODIUM [Concomitant]
     Dates: start: 20101228
  8. AMOXICILLIN [Concomitant]
     Dates: start: 20110202, end: 20110214
  9. TRASTUZUMAB [Suspect]
     Dosage: DOSE FORM INFUSION, LAST DOSE PRIOR TO SAE ON 03 FEB 2011
     Route: 042
  10. OMNARIS [Concomitant]
     Dates: start: 20001209, end: 20101222
  11. ADVIL LIQUI-GELS [Concomitant]
     Dates: start: 20000101, end: 20110113
  12. TYLENOL (CAPLET) [Concomitant]
     Dates: start: 19750101, end: 20110112
  13. NEUPOGEN [Concomitant]
     Dosage: TDD: 5 DOSES EVERY OTHER DAY
     Dates: start: 20110114, end: 20110423
  14. PERCOCET [Concomitant]
     Dates: start: 20101207, end: 20101222
  15. PERTUZUMAB [Suspect]
     Indication: BREAST CANCER
     Dosage: LOADING DOSE; DOSE FORM INFUSION,LAST DSOE PRIOR TO SAE:22 DEC 2010
     Route: 042
     Dates: start: 20101222
  16. DOCETAXEL [Suspect]
     Indication: BREAST CANCER
     Dosage: DOSE FORM INFUSION, LAST DOSE PRIOR TO SAE ON 03 FEB 2011
     Route: 042
     Dates: start: 20101222
  17. ONDANSETRON [Concomitant]
     Dates: start: 20110210, end: 20110211
  18. ALBUTEROL [Concomitant]
     Dosage: TDD: 4-8 PUFF
     Dates: start: 20101209, end: 20101222
  19. ADVAIR DISKUS 100/50 [Concomitant]
     Dosage: TDD: 4 PUFFS
     Dates: start: 20101209, end: 20101222
  20. ACETAMINOPHEN [Concomitant]
     Dosage: TDD: 4-8 TABLETS
     Dates: start: 20110210, end: 20110211
  21. PERTUZUMAB [Suspect]
     Dosage: LAST DOSE PRIOR TO SAE ON 03 FEB 2011
     Route: 042
  22. IMOVANE [Concomitant]
     Dates: start: 20101109
  23. ATIVAN [Concomitant]
     Dates: start: 20070101, end: 20110202
  24. ZANTAC [Concomitant]
     Dates: start: 20101230, end: 20110410
  25. PHENAZOPYRIDINE HCL TAB [Concomitant]
     Dates: start: 20110201, end: 20110214
  26. CARBOPLATIN [Suspect]
     Route: 042
     Dates: start: 20110303

REACTIONS (4)
  - FEBRILE NEUTROPENIA [None]
  - NAUSEA [None]
  - DIARRHOEA [None]
  - CLOSTRIDIUM DIFFICILE COLITIS [None]
